FAERS Safety Report 25754924 (Version 1)
Quarter: 2025Q3

REPORT INFORMATION
  Report Type: Spontaneous
  Country: EU (occurrence: EU)
  Receive Date: 20250903
  Receipt Date: 20250903
  Transmission Date: 20251021
  Serious: Yes (Hospitalization, Other)
  Sender: RANBAXY
  Company Number: EU-SUN PHARMACEUTICAL INDUSTRIES LTD-2025RR-525320

PATIENT
  Age: 75 Year
  Sex: Female
  Weight: 51.4 kg

DRUGS (4)
  1. RISPERIDONE [Suspect]
     Active Substance: RISPERIDONE
     Indication: Product used for unknown indication
     Dosage: 1 MILLIGRAM, DAILY
     Route: 048
     Dates: end: 20250501
  2. LANSOPRAZOLE [Suspect]
     Active Substance: LANSOPRAZOLE
     Indication: Product used for unknown indication
     Dosage: 15 MILLIGRAM, DAILY
     Route: 048
     Dates: end: 20250430
  3. PERINDOPRIL [Suspect]
     Active Substance: PERINDOPRIL
     Indication: Hypertension
     Dosage: 4 MILLIGRAM, DAILY
     Route: 048
     Dates: start: 2021, end: 20250430
  4. MIANSERIN HYDROCHLORIDE [Suspect]
     Active Substance: MIANSERIN HYDROCHLORIDE
     Indication: Product used for unknown indication
     Dosage: 10 MILLIGRAM, DAILY
     Route: 048
     Dates: start: 2022, end: 20250430

REACTIONS (2)
  - Hyponatraemia [Recovering/Resolving]
  - Inappropriate antidiuretic hormone secretion [Recovering/Resolving]

NARRATIVE: CASE EVENT DATE: 20250325
